FAERS Safety Report 6121747-5 (Version None)
Quarter: 2009Q1

REPORT INFORMATION
  Report Type: 
  Country: None (occurrence: None)
  Receive Date: 20090317
  Receipt Date: 20090306
  Transmission Date: 20090719
  Serious: Yes (Other)
  Sender: FDA-Public Use
  Company Number: GB-ELI_LILLY_AND_COMPANY-GB200903001959

PATIENT
  Age: 42 Year
  Sex: Female

DRUGS (2)
  1. ZYPREXA [Suspect]
     Indication: PSYCHIATRIC SYMPTOM
     Dosage: 5 MG, UNK
     Dates: start: 20070101
  2. CIPRAMIL [Concomitant]
     Dosage: 30 MG, UNK

REACTIONS (1)
  - RECTAL HAEMORRHAGE [None]
